FAERS Safety Report 24046285 (Version 1)
Quarter: 2024Q3

REPORT INFORMATION
  Report Type: Spontaneous
  Country: DE (occurrence: DE)
  Receive Date: 20240703
  Receipt Date: 20240703
  Transmission Date: 20241017
  Serious: Yes (Other)
  Sender: AMGEN
  Company Number: DE-AMGEN-DEUSP2024129716

PATIENT

DRUGS (1)
  1. PROLIA [Suspect]
     Active Substance: DENOSUMAB
     Indication: Osteoporosis
     Dosage: 60 MILLIGRAM, Q6MO
     Route: 058

REACTIONS (9)
  - Hyperthyroidism [Unknown]
  - Hypothyroidism [Unknown]
  - Blood calcium increased [Unknown]
  - Vitamin D deficiency [Unknown]
  - C-reactive protein increased [Unknown]
  - Red blood cell sedimentation rate increased [Unknown]
  - Osteocalcin decreased [Unknown]
  - C-telopeptide increased [Unknown]
  - Blood calcium decreased [Unknown]
